FAERS Safety Report 16653071 (Version 1)
Quarter: 2019Q3

REPORT INFORMATION
  Report Type: Spontaneous
  Country: JP (occurrence: JP)
  Receive Date: 20190731
  Receipt Date: 20190731
  Transmission Date: 20191004
  Serious: Yes (Other)
  Sender: FDA-Public Use
  Company Number: JP-ASTRAZENECA-2019SF08274

PATIENT
  Age: 50 Year
  Sex: Female

DRUGS (1)
  1. LYNPARZA [Suspect]
     Active Substance: OLAPARIB
     Indication: OVARIAN CANCER
     Dosage: 300 MG, NUMBER OF SEPARATE DOSAGES UNKNOWN
     Route: 048

REACTIONS (4)
  - Malignant neoplasm progression [Unknown]
  - Oedema peripheral [Unknown]
  - Renal disorder [Unknown]
  - Rash [Unknown]
